FAERS Safety Report 10795485 (Version 6)
Quarter: 2015Q1

REPORT INFORMATION
  Report Type: Report from Study
  Country: DK (occurrence: DK)
  Receive Date: 20150215
  Receipt Date: 20150320
  Transmission Date: 20150721
  Serious: Yes (Hospitalization)
  Sender: FDA-Public Use
  Company Number: DK-WATSON-2015-01929

PATIENT
  Age: 61 Year
  Sex: Male
  Weight: 52 kg

DRUGS (18)
  1. VINCRISTINE (UNKNOWN) [Suspect]
     Active Substance: VINCRISTINE
     Indication: DIFFUSE LARGE B-CELL LYMPHOMA
     Dosage: 2 MG, CYCLICAL
     Route: 042
     Dates: start: 20110818, end: 20110818
  2. SENDOXAN [Suspect]
     Active Substance: CYCLOPHOSPHAMIDE
     Dosage: 1275 MG, CYCLICAL
     Route: 042
     Dates: start: 20110803
  3. SENDOXAN [Suspect]
     Active Substance: CYCLOPHOSPHAMIDE
     Dosage: 1275 MG, CYCLICAL
     Route: 042
     Dates: start: 20110718
  4. NEUPOGEN [Suspect]
     Active Substance: FILGRASTIM
     Indication: DIFFUSE LARGE B-CELL LYMPHOMA
     Dosage: 6 MG, CYCLICAL
     Route: 058
     Dates: start: 20110819, end: 20110819
  5. DOXORUBICIN (UNKNOWN) [Suspect]
     Active Substance: DOXORUBICIN
     Indication: DIFFUSE LARGE B-CELL LYMPHOMA
     Dosage: 85 MG, CYCLICAL
     Route: 042
     Dates: start: 20110818, end: 20110818
  6. DOXORUBICIN (UNKNOWN) [Suspect]
     Active Substance: DOXORUBICIN
     Dosage: 85 MG, CYCLICAL
     Route: 042
     Dates: start: 20110718
  7. VINCRISTINE (UNKNOWN) [Suspect]
     Active Substance: VINCRISTINE
     Dosage: 2 MG, CYCLICAL
     Route: 042
     Dates: start: 20110803
  8. RITUXIMAB [Suspect]
     Active Substance: RITUXIMAB
     Indication: DIFFUSE LARGE B-CELL LYMPHOMA
     Dosage: 650 MG, CYCLICAL
     Route: 042
     Dates: start: 20110818, end: 20110818
  9. RITUXIMAB [Suspect]
     Active Substance: RITUXIMAB
     Dosage: 650 MG, CYCLICAL
     Route: 042
     Dates: start: 20110803
  10. DOXORUBICIN (UNKNOWN) [Suspect]
     Active Substance: DOXORUBICIN
     Dosage: 85 MG, CYCLICAL
     Route: 042
     Dates: start: 20110803
  11. VINCRISTINE (UNKNOWN) [Suspect]
     Active Substance: VINCRISTINE
     Dosage: 2 MG, CYCLICAL
     Route: 042
     Dates: start: 20110718
  12. PREDNISONE (UNKNOWN) [Suspect]
     Active Substance: PREDNISONE
     Indication: DIFFUSE LARGE B-CELL LYMPHOMA
     Dosage: 100 MG, CYCLICAL
     Route: 048
     Dates: start: 20110818, end: 20110822
  13. RITUXIMAB [Suspect]
     Active Substance: RITUXIMAB
     Dosage: 650 MG, CYCLICAL
     Route: 042
     Dates: start: 20110718
  14. NEUPOGEN [Suspect]
     Active Substance: FILGRASTIM
     Dosage: 6 MG, CYCLICAL
     Route: 058
     Dates: start: 20110804
  15. PREDNISONE (UNKNOWN) [Suspect]
     Active Substance: PREDNISONE
     Dosage: 100 MG, CYCLICAL
     Route: 048
     Dates: start: 20110803
  16. SENDOXAN [Suspect]
     Active Substance: CYCLOPHOSPHAMIDE
     Indication: DIFFUSE LARGE B-CELL LYMPHOMA
     Dosage: 1275 MG, CYCLICAL
     Route: 042
     Dates: start: 20110818, end: 20110818
  17. PREDNISONE (UNKNOWN) [Suspect]
     Active Substance: PREDNISONE
     Dosage: 100 MG, CYCLICAL
     Route: 048
     Dates: start: 20110718
  18. NEUPOGEN [Suspect]
     Active Substance: FILGRASTIM
     Dosage: 6 MG, CYCLICAL
     Route: 058
     Dates: start: 20110720

REACTIONS (4)
  - Stomatitis [Recovered/Resolved]
  - Diarrhoea [Recovered/Resolved]
  - Febrile neutropenia [Recovered/Resolved]
  - Weight decreased [Recovered/Resolved]

NARRATIVE: CASE EVENT DATE: 20110719
